FAERS Safety Report 20107747 (Version 1)
Quarter: 2021Q4

REPORT INFORMATION
  Report Type: Spontaneous
  Country: US (occurrence: US)
  Receive Date: 20211124
  Receipt Date: 20211124
  Transmission Date: 20220303
  Serious: No
  Sender: FDA-Public Use
  Company Number: US-PERRIGO-20US018089

PATIENT
  Sex: Male
  Weight: 92.063 kg

DRUGS (13)
  1. POLYETHYLENE GLYCOL 3350 [Suspect]
     Active Substance: POLYETHYLENE GLYCOL 3350
     Indication: Bowel movement irregularity
     Dosage: A LITTLE MORE THAN 17 G, NIGHTLY
     Route: 048
     Dates: end: 20201212
  2. LOSARTAN [Concomitant]
     Active Substance: LOSARTAN
     Indication: Hypertension
     Dosage: 50 MG, BID
     Route: 065
     Dates: start: 202011
  3. LOSARTAN AND HYDROCHLOROTHIAZIDE [Concomitant]
     Active Substance: HYDROCHLOROTHIAZIDE\LOSARTAN POTASSIUM
     Indication: Hypertension
     Dosage: 100 MG, EVERY MORNING
     Route: 065
     Dates: end: 2020
  4. METOPROLOL [Concomitant]
     Active Substance: METOPROLOL
     Indication: Hypertension
     Dosage: 100 MG
     Route: 065
     Dates: end: 2020
  5. FUROSEMIDE [Concomitant]
     Active Substance: FUROSEMIDE
     Indication: Swelling
     Dosage: 40 MG, UNKNOWN
     Route: 065
     Dates: start: 202012
  6. FUROSEMIDE [Concomitant]
     Active Substance: FUROSEMIDE
     Indication: Fluid retention
  7. ASPIRIN                            /00002701/ [Concomitant]
     Indication: Anticoagulant therapy
     Dosage: 365 MG, BID
     Route: 065
     Dates: start: 20201117
  8. OMEGA 3                            /01333901/ [Concomitant]
     Indication: Supplementation therapy
     Dosage: UNKNOWN, UNKNOWN
     Route: 065
  9. COQ10                              /00517201/ [Concomitant]
     Indication: Supplementation therapy
     Dosage: UNKNOWN, UNKNOWN
     Route: 065
  10. VITAMIN C                          /00008001/ [Concomitant]
     Indication: Supplementation therapy
     Dosage: UNKNOWN, UNKNOWN
     Route: 065
  11. MAGNESIUM [Concomitant]
     Active Substance: MAGNESIUM
     Indication: Supplementation therapy
     Dosage: UNKNOWN, UNKNOWN
     Route: 065
  12. B12                                /00056201/ [Concomitant]
     Indication: Supplementation therapy
     Dosage: UNKNOWN
     Route: 065
  13. CENTRUM SILVER                     /02363801/ [Concomitant]
     Indication: Supplementation therapy
     Dosage: UNKNOWN, UNKNOWN
     Route: 065

REACTIONS (2)
  - Incorrect product administration duration [Recovered/Resolved]
  - Incorrect dose administered [Recovered/Resolved]
